FAERS Safety Report 13243566 (Version 1)
Quarter: 2017Q1

REPORT INFORMATION
  Report Type: Spontaneous
  Country: JP (occurrence: JP)
  Receive Date: 20170217
  Receipt Date: 20170217
  Transmission Date: 20170428
  Serious: Yes (Death)
  Sender: FDA-Public Use
  Company Number: PHJP2017JP005563

PATIENT

DRUGS (1)
  1. IMATINIB [Suspect]
     Active Substance: IMATINIB
     Indication: CHRONIC MYELOID LEUKAEMIA
     Dosage: UNK
     Route: 065

REACTIONS (5)
  - Hepatic cirrhosis [Fatal]
  - Hepatocellular carcinoma [Fatal]
  - Second primary malignancy [Fatal]
  - Colon cancer [Fatal]
  - Bladder cancer [Fatal]
